FAERS Safety Report 9729810 (Version 2)
Quarter: 2013Q4

REPORT INFORMATION
  Report Type: Spontaneous
  Country: US (occurrence: US)
  Receive Date: 20131204
  Receipt Date: 20131204
  Transmission Date: 20140711
  Serious: No
  Sender: FDA-Public Use
  Company Number: US-GILEAD-2009-0022308

PATIENT
  Sex: Female

DRUGS (10)
  1. LETAIRIS [Suspect]
     Indication: PULMONARY ARTERIAL HYPERTENSION
     Route: 048
     Dates: start: 20090501
  2. WARFARIN [Concomitant]
  3. CRESTOR [Concomitant]
  4. ZYRTEC [Concomitant]
  5. VITAMIN B COMPLEX [Concomitant]
  6. GONINI JUICE [Concomitant]
  7. TYLENOL ARTHRITIS [Concomitant]
  8. MIRALAX [Concomitant]
  9. FISH OIL/FLAX OIL [Concomitant]
  10. GAS-X [Concomitant]

REACTIONS (6)
  - Dizziness [Unknown]
  - Fatigue [Unknown]
  - Asthenia [Unknown]
  - Headache [Unknown]
  - Dyspnoea [Unknown]
  - Palpitations [Unknown]
